FAERS Safety Report 23319131 (Version 2)
Quarter: 2024Q1

REPORT INFORMATION
  Report Type: Report from Study
  Country: US (occurrence: US)
  Receive Date: 20231220
  Receipt Date: 20240214
  Transmission Date: 20240410
  Serious: Yes (Other)
  Sender: FDA-Public Use
  Company Number: US-ABBVIE-5549239

PATIENT
  Sex: Female

DRUGS (2)
  1. RINVOQ [Suspect]
     Active Substance: UPADACITINIB
     Indication: Rheumatoid arthritis
     Dosage: END DATE IN 2023
     Route: 048
     Dates: start: 20230712
  2. RINVOQ [Suspect]
     Active Substance: UPADACITINIB
     Indication: Rheumatoid arthritis
     Route: 048
     Dates: start: 20230822

REACTIONS (7)
  - Nerve compression [Not Recovered/Not Resolved]
  - Peripheral swelling [Recovering/Resolving]
  - Investigation abnormal [Unknown]
  - Limb discomfort [Recovering/Resolving]
  - Cyst [Recovering/Resolving]
  - Arthropathy [Unknown]
  - Rheumatoid arthritis [Unknown]

NARRATIVE: CASE EVENT DATE: 20230101
